FAERS Safety Report 23100016 (Version 1)
Quarter: 2023Q4

REPORT INFORMATION
  Report Type: Spontaneous
  Country: US (occurrence: None)
  Receive Date: 20231023
  Receipt Date: 20231023
  Transmission Date: 20240110
  Serious: Yes (Other)
  Sender: FDA-Public Use
  Company Number: None

PATIENT
  Age: 12 Year
  Sex: Male
  Weight: 34.2 kg

DRUGS (5)
  1. STIRIPENTOL [Suspect]
     Active Substance: STIRIPENTOL
     Dosage: OTHER QUANTITY : 60 CAPSULE(S);?FREQUENCY : EVERY 12 HOURS;?OTHER ROUTE : ORAL;?
     Route: 050
  2. ONFI [Concomitant]
     Active Substance: CLOBAZAM
  3. tompamax [Concomitant]
  4. EPIDIOLEX [Concomitant]
     Active Substance: CANNABIDIOL
  5. ABILIFY [Concomitant]
     Active Substance: ARIPIPRAZOLE

REACTIONS (2)
  - Obsessive-compulsive disorder [None]
  - Abnormal behaviour [None]

NARRATIVE: CASE EVENT DATE: 20230701
